FAERS Safety Report 14746531 (Version 1)
Quarter: 2018Q2

REPORT INFORMATION
  Report Type: Spontaneous
  Country: NL (occurrence: NL)
  Receive Date: 20180411
  Receipt Date: 20180411
  Transmission Date: 20180711
  Serious: Yes (Other)
  Sender: FDA-Public Use
  Company Number: NL-TOLMAR, INC.-TOLG20180197

PATIENT
  Age: 5 Year
  Sex: Male

DRUGS (3)
  1. TOPIRAMATE. [Suspect]
     Active Substance: TOPIRAMATE
     Indication: EPILEPTIC ENCEPHALOPATHY
     Dosage: UNKNOWN
     Route: 065
  2. LEVETIRACETAM. [Suspect]
     Active Substance: LEVETIRACETAM
     Indication: EPILEPTIC ENCEPHALOPATHY
     Dosage: UNKNOWN
     Route: 065
  3. ZONISAMIDE. [Suspect]
     Active Substance: ZONISAMIDE
     Indication: EPILEPTIC ENCEPHALOPATHY
     Dosage: UNKNOWN
     Route: 065

REACTIONS (4)
  - Encephalopathy [Recovered/Resolved]
  - Status epilepticus [Unknown]
  - Dysarthria [Recovered/Resolved]
  - Ataxia [Recovered/Resolved]
